FAERS Safety Report 5766285-4 (Version None)
Quarter: 2008Q2

REPORT INFORMATION
  Report Type: 
  Country: None (occurrence: None)
  Receive Date: 20080606
  Receipt Date: 20080522
  Transmission Date: 20081010
  Serious: Yes (Death, Hospitalization)
  Sender: FDA-Public Use
  Company Number: 2008AL005800

PATIENT
  Age: 73 Year
  Sex: Male

DRUGS (3)
  1. DIGOXIN [Suspect]
     Indication: CARDIAC DISORDER
     Dosage: 0.125 MG, DAILY, PO
     Route: 048
     Dates: start: 20060101
  2. PREDNISONE TAB [Concomitant]
  3. LIPITOR [Concomitant]

REACTIONS (3)
  - CARDIAC FAILURE [None]
  - MALAISE [None]
  - PNEUMONIA [None]
